FAERS Safety Report 12128161 (Version 1)
Quarter: 2016Q1

REPORT INFORMATION
  Report Type: Spontaneous
  Country: DE (occurrence: DE)
  Receive Date: 20160229
  Receipt Date: 20160229
  Transmission Date: 20160526
  Serious: Yes (Hospitalization)
  Sender: FDA-Public Use
  Company Number: DE-MYLANLABS-2016M1008455

PATIENT

DRUGS (2)
  1. REPAGLINIDE. [Suspect]
     Active Substance: REPAGLINIDE
     Dosage: 10.5MG REPAGLINIDE (21 TABLETS, 0.5MG EACH)
     Route: 048
  2. REPAGLINIDE. [Suspect]
     Active Substance: REPAGLINIDE
     Indication: MONOGENIC DIABETES
     Dosage: UNK
     Route: 065

REACTIONS (4)
  - Suicide attempt [Unknown]
  - Abdominal pain [Recovered/Resolved]
  - Intentional overdose [Unknown]
  - Hypoglycaemia [Recovered/Resolved]
